FAERS Safety Report 18712743 (Version 2)
Quarter: 2021Q3

REPORT INFORMATION
  Report Type: Spontaneous
  Country: US (occurrence: US)
  Receive Date: 20210107
  Receipt Date: 20210813
  Transmission Date: 20211014
  Serious: Yes (Disabling, Other)
  Sender: FDA-Public Use
  Company Number: US-PURDUE-USA-2020-0183954

PATIENT
  Sex: Male

DRUGS (2)
  1. BUPRENORPHINE TRANSDERMAL PATCH [Suspect]
     Active Substance: BUPRENORPHINE
     Indication: FOETAL EXPOSURE DURING PREGNANCY
     Dosage: UNKNOWN DOSE
     Route: 064
  2. OXYCONTIN [Suspect]
     Active Substance: OXYCODONE HYDROCHLORIDE
     Indication: FOETAL EXPOSURE DURING PREGNANCY
     Dosage: UNKNOWN DOSE
     Route: 064

REACTIONS (6)
  - Drug withdrawal syndrome neonatal [Unknown]
  - Developmental delay [Unknown]
  - Drug dependence [Unknown]
  - Learning disability [Not Recovered/Not Resolved]
  - Visual impairment [Unknown]
  - Foetal exposure during pregnancy [Unknown]
